FAERS Safety Report 4955089-8 (Version None)
Quarter: 2006Q1

REPORT INFORMATION
  Report Type: 
  Country: None (occurrence: None)
  Receive Date: 20060322
  Receipt Date: 20060301
  Transmission Date: 20060701
  Serious: Yes (Life-Threatening, Hospitalization, Disabling)
  Sender: FDA-Public Use
  Company Number: US200603000598

PATIENT
  Age: 76 Year
  Sex: Female

DRUGS (2)
  1. FORTEO [Suspect]
     Indication: OSTEOPOROSIS
     Dosage: SEE IAMGE
     Dates: end: 20050601
  2. FORTEO [Suspect]
     Indication: OSTEOPOROSIS
     Dosage: SEE IAMGE
     Dates: start: 20050701

REACTIONS (14)
  - FRACTURE [None]
  - IMPAIRED HEALING [None]
  - INJECTION SITE BRUISING [None]
  - INJURY [None]
  - LOWER LIMB FRACTURE [None]
  - MEDICAL DEVICE COMPLICATION [None]
  - OEDEMA PERIPHERAL [None]
  - PAIN [None]
  - PHARMACEUTICAL PRODUCT COMPLAINT [None]
  - ROAD TRAFFIC ACCIDENT [None]
  - SHOCK [None]
  - SKIN DISCOLOURATION [None]
  - UPPER LIMB FRACTURE [None]
  - WRONG TECHNIQUE IN DRUG USAGE PROCESS [None]
